FAERS Safety Report 25458918 (Version 1)
Quarter: 2025Q2

REPORT INFORMATION
  Report Type: Spontaneous
  Country: JP (occurrence: JP)
  Receive Date: 20250620
  Receipt Date: 20250620
  Transmission Date: 20250717
  Serious: Yes (Death, Hospitalization, Other)
  Sender: ROCHE
  Company Number: JP-CHUGAI-2025002595

PATIENT
  Age: 75 Year
  Sex: Female
  Weight: 47 kg

DRUGS (19)
  1. RITUXIMAB [Suspect]
     Active Substance: RITUXIMAB
     Indication: Diffuse large B-cell lymphoma
     Dosage: UNK
     Route: 042
     Dates: start: 20241218, end: 20241218
  2. POLIVY [Suspect]
     Active Substance: POLATUZUMAB VEDOTIN-PIIQ
     Indication: Diffuse large B-cell lymphoma
     Route: 042
     Dates: start: 20231117, end: 20240201
  3. POLIVY [Suspect]
     Active Substance: POLATUZUMAB VEDOTIN-PIIQ
     Route: 042
     Dates: start: 20240722, end: 20240822
  4. POLIVY [Suspect]
     Active Substance: POLATUZUMAB VEDOTIN-PIIQ
     Dosage: 30 MILLIGRAM, ONCE/4WEEKS
     Route: 042
     Dates: start: 20241219, end: 20241219
  5. BENDAMUSTINE HYDROCHLORIDE [Suspect]
     Active Substance: BENDAMUSTINE HYDROCHLORIDE
     Indication: Diffuse large B-cell lymphoma
     Dosage: 120 MILLIGRAM, ONCE/4WEEKS
     Route: 042
     Dates: start: 20241219, end: 20241220
  6. GRANISETRON HYDROCHLORIDE [Concomitant]
     Active Substance: GRANISETRON HYDROCHLORIDE
     Route: 042
     Dates: start: 20241219, end: 20241220
  7. ORGADRONE [Concomitant]
     Active Substance: DEXAMETHASONE SODIUM PHOSPHATE
     Route: 042
     Dates: start: 20241219, end: 20241220
  8. LOXOPROFEN SODIUM [Concomitant]
     Active Substance: LOXOPROFEN SODIUM
     Indication: Pain
     Route: 050
  9. FEXOFENADINE HYDROCHLORIDE [Concomitant]
     Active Substance: FEXOFENADINE HYDROCHLORIDE
     Route: 050
  10. OXYCODONE HYDROCHLORIDE [Concomitant]
     Active Substance: OXYCODONE HYDROCHLORIDE
     Indication: Pain
     Route: 050
  11. ASPIRIN [Concomitant]
     Active Substance: ASPIRIN
     Dosage: 100 MILLIGRAM, QD,IMMEDIATELY AFTER BREAKFAST
     Route: 050
  12. VONOPRAZAN FUMARATE [Concomitant]
     Active Substance: VONOPRAZAN FUMARATE
     Dosage: 20 MILLIGRAM, QD,IMMEDIATELY AFTER BREAKFAST
     Route: 050
  13. ACYCLOVIR [Concomitant]
     Active Substance: ACYCLOVIR
     Dosage: 200 MILLIGRAM, QD,IMMEDIATELY AFTER BREAKFAST
     Route: 050
  14. SULFAMETHOXAZOLE\TRIMETHOPRIM [Concomitant]
     Active Substance: SULFAMETHOXAZOLE\TRIMETHOPRIM
     Dosage: 1 DOSAGE FORM, QD,MONDAY/WEDNESDAY/FRIDAY,IMMEDIATELY AFTER BREAKFAST
     Route: 050
  15. ROSUVASTATIN CALCIUM [Concomitant]
     Active Substance: ROSUVASTATIN CALCIUM
     Dosage: 2.5 MILLIGRAM, QD,IMMEDIATELY AFTER BREAKFAST
     Route: 050
  16. PREDONINE [Concomitant]
     Active Substance: PREDNISOLONE
     Dosage: 10 MILLIGRAM, QD,IMMEDIATELY AFTER BREAKFAST
     Route: 050
  17. BERIZYM [CELLULASE;DIASTASE;LIPASE;PANCREATIN] [Concomitant]
     Dosage: 1 GRAM, TID,IMMEDIATELY AFTER EACH MEAL
     Route: 050
  18. MAGNESIUM OXIDE [Concomitant]
     Active Substance: MAGNESIUM OXIDE
     Dosage: 330 MILLIGRAM, TID,IMMEDIATELY AFTER EACH MEAL
     Route: 050
  19. REBAMIPIDE [Concomitant]
     Active Substance: REBAMIPIDE
     Dosage: 100 MILLIGRAM, TID,IMMEDIATELY AFTER EACH MEAL
     Route: 050

REACTIONS (5)
  - Neutrophil count decreased [Recovered/Resolved]
  - Febrile neutropenia [Recovered/Resolved]
  - Platelet count decreased [Not Recovered/Not Resolved]
  - White blood cell count decreased [Not Recovered/Not Resolved]
  - Disease progression [Fatal]

NARRATIVE: CASE EVENT DATE: 20250108
